FAERS Safety Report 24285812 (Version 3)
Quarter: 2024Q4

REPORT INFORMATION
  Report Type: Spontaneous
  Country: GB (occurrence: GB)
  Receive Date: 20240905
  Receipt Date: 20241105
  Transmission Date: 20250115
  Serious: Yes (Other)
  Sender: PFIZER
  Company Number: None

PATIENT
  Age: 54 Year
  Sex: Female
  Weight: 65 kg

DRUGS (2)
  1. ESTRING [Suspect]
     Active Substance: ESTRADIOL
     Indication: Urinary tract infection
     Dosage: 7.5 UG
     Dates: end: 20240829
  2. ESTRING [Suspect]
     Active Substance: ESTRADIOL
     Indication: Vulvovaginal dryness

REACTIONS (7)
  - Swelling [Recovered/Resolved]
  - Urinary retention [Recovered/Resolved]
  - Paraesthesia [Recovered/Resolved]
  - Muscle spasms [Recovered/Resolved]
  - Discomfort [Recovered/Resolved]
  - Vaginal discharge [Recovered/Resolved]
  - Dysstasia [Recovered/Resolved]

NARRATIVE: CASE EVENT DATE: 20240828
